FAERS Safety Report 6560053 (Version 5)
Quarter: 2014Q4

REPORT INFORMATION
  Report Type: Spontaneous
  Country: JP (occurrence: JP)
  Receive Date: 20080225
  Receipt Date: 20141111
  Transmission Date: 20150529
  Serious: Yes (Death, Disabling, Other)
  Sender: FDA-Public Use
  Company Number: PHHY2008JP01911

PATIENT
  Age: 70 Year
  Sex: Female
  Weight: 39 kg

DRUGS (7)
  1. ZOMETA [Suspect]
     Active Substance: ZOLEDRONIC ACID
     Indication: BREAST CANCER
     Dosage: 4 MG, QMO
     Route: 042
     Dates: start: 200606, end: 200611
  2. AROMASIN [Concomitant]
     Active Substance: EXEMESTANE
     Indication: PRODUCT USED FOR UNKNOWN INDICATION
     Route: 048
  3. AREDIA [Suspect]
     Active Substance: PAMIDRONATE DISODIUM
     Indication: OFF LABEL USE
  4. CAPECITABINE. [Concomitant]
     Active Substance: CAPECITABINE
     Indication: PRODUCT USED FOR UNKNOWN INDICATION
     Dosage: 1800 MG, QD
     Route: 065
     Dates: start: 200606
  5. AREDIA [Suspect]
     Active Substance: PAMIDRONATE DISODIUM
     Indication: METASTASES TO BONE
     Dosage: 30 MG, QMO
     Route: 042
     Dates: start: 20041101, end: 200607
  6. XELODA [Concomitant]
     Active Substance: CAPECITABINE
     Indication: PRODUCT USED FOR UNKNOWN INDICATION
     Route: 048
  7. AREDIA [Suspect]
     Active Substance: PAMIDRONATE DISODIUM
     Indication: BLOOD PRESSURE

REACTIONS (17)
  - Osteonecrosis of jaw [Not Recovered/Not Resolved]
  - Impaired healing [Unknown]
  - Gingival abscess [Unknown]
  - Cardio-respiratory arrest [Fatal]
  - Primary sequestrum [Unknown]
  - Breast cancer [Fatal]
  - Osteomyelitis [Not Recovered/Not Resolved]
  - Bone disorder [Unknown]
  - Body temperature decreased [Unknown]
  - Gait disturbance [Unknown]
  - Metastases to lung [Fatal]
  - Eating disorder [Unknown]
  - Computerised tomogram abnormal [Unknown]
  - Gingival swelling [Unknown]
  - Bone density increased [Unknown]
  - General physical health deterioration [Unknown]
  - Metastases to spine [Unknown]

NARRATIVE: CASE EVENT DATE: 200411
